FAERS Safety Report 12955227 (Version 1)
Quarter: 2016Q4

REPORT INFORMATION
  Report Type: Spontaneous
  Country: US (occurrence: US)
  Receive Date: 20161118
  Receipt Date: 20161118
  Transmission Date: 20170207
  Serious: No
  Sender: FDA-Public Use
  Company Number: US-PERRIGO-16US000116

PATIENT
  Age: 59 Year
  Sex: Female
  Weight: 69.84 kg

DRUGS (6)
  1. FISH OIL [Concomitant]
     Active Substance: FISH OIL
     Indication: ANORECTAL DISORDER
     Dosage: 2000 MG, TID
     Route: 048
     Dates: start: 2010
  2. HYDROCODONE [Concomitant]
     Active Substance: HYDROCODONE
     Indication: ARTHRALGIA
     Dosage: 5/325 MG, EVERY 6 HOURS
     Route: 048
     Dates: start: 20151222
  3. PREPARATION H                      /07748301/ [Concomitant]
     Indication: HAEMORRHOIDS
     Dosage: UNK
     Route: 065
     Dates: start: 2009
  4. HYDROCODONE [Concomitant]
     Active Substance: HYDROCODONE
     Indication: NECK PAIN
  5. POLYETHYLENE GLYCOL 3350. [Suspect]
     Active Substance: POLYETHYLENE GLYCOL 3350
     Indication: FAECES HARD
     Dosage: 4.25 G, UNKNOWN
     Route: 048
     Dates: start: 2011, end: 2015
  6. MAGNESIUM [Concomitant]
     Active Substance: MAGNESIUM
     Indication: FAECES HARD
     Dosage: 100 OR 150 MG, QD AT BEDTIME
     Route: 048
     Dates: start: 2012

REACTIONS (4)
  - Diarrhoea [Recovered/Resolved]
  - Drug ineffective [Unknown]
  - Underdose [Unknown]
  - Expired product administered [Recovered/Resolved]

NARRATIVE: CASE EVENT DATE: 2011
